FAERS Safety Report 16224317 (Version 2)
Quarter: 2019Q2

REPORT INFORMATION
  Report Type: Spontaneous
  Country: DE (occurrence: DE)
  Receive Date: 20190422
  Receipt Date: 20190424
  Transmission Date: 20190711
  Serious: Yes (Hospitalization, Other)
  Sender: FDA-Public Use
  Company Number: DE-GILEAD-2019-0403538

PATIENT
  Age: 66 Year
  Sex: Female
  Weight: 99 kg

DRUGS (13)
  1. CARVEDILOL. [Concomitant]
     Active Substance: CARVEDILOL
     Dosage: 25 MG, BID
  2. INSULIN GLARGINE [Concomitant]
     Active Substance: INSULIN GLARGINE
  3. METFORMIN HYDROCHLORIDE. [Concomitant]
     Active Substance: METFORMIN HYDROCHLORIDE
  4. RANOLAZINE. [Suspect]
     Active Substance: RANOLAZINE
     Indication: ANGINA PECTORIS
     Dosage: 375 MG, BID
     Route: 048
     Dates: start: 201903, end: 20190410
  5. ATORVASTATIN [Concomitant]
     Active Substance: ATORVASTATIN
  6. RANOLAZINE. [Suspect]
     Active Substance: RANOLAZINE
     Indication: DIABETIC MICROANGIOPATHY
     Dosage: 375 MG, QD
     Route: 048
     Dates: start: 20190108
  7. AMLODIPINE BESILATE;VALSARTAN [Concomitant]
     Dosage: 1 DOSAGE FORM, BID
  8. ETORICOXIB. [Concomitant]
     Active Substance: ETORICOXIB
     Indication: PAIN
     Dosage: 90 MG, PRN
  9. SPIRONOLACTONE. [Concomitant]
     Active Substance: SPIRONOLACTONE
  10. INSULIN GLULISINE [Concomitant]
     Active Substance: INSULIN GLULISINE
     Dosage: (ACCORDING TO THE PLAN)
     Route: 058
  11. DULAGLUTIDE. [Concomitant]
     Active Substance: DULAGLUTIDE
     Dosage: EVERY TUESDAY
     Route: 042
  12. METAMIZOLE SODIUM [Concomitant]
     Active Substance: METAMIZOLE SODIUM
     Indication: PAIN
  13. TORASEMIDE [Concomitant]
     Active Substance: TORSEMIDE
     Dosage: 5 MG, QD

REACTIONS (4)
  - Renal impairment [Recovering/Resolving]
  - Condition aggravated [Unknown]
  - Underdose [Recovered/Resolved]
  - Glomerular filtration rate decreased [Recovering/Resolving]

NARRATIVE: CASE EVENT DATE: 20190108
